FAERS Safety Report 10975534 (Version 1)
Quarter: 2015Q2

REPORT INFORMATION
  Report Type: Spontaneous
  Country: US (occurrence: US)
  Receive Date: 20150401
  Receipt Date: 20150401
  Transmission Date: 20150821
  Serious: Yes (Other)
  Sender: FDA-Public Use
  Company Number: US-ABBVIE-15P-163-1366051-00

PATIENT
  Sex: Male

DRUGS (1)
  1. ANDROGEL [Suspect]
     Active Substance: TESTOSTERONE
     Indication: BLOOD TESTOSTERONE DECREASED
     Route: 065
     Dates: start: 2000

REACTIONS (6)
  - Myocardial infarction [Unknown]
  - Economic problem [Unknown]
  - Impaired work ability [Unknown]
  - Cardiac disorder [Unknown]
  - Injury [Unknown]
  - Social problem [Unknown]

NARRATIVE: CASE EVENT DATE: 2005
